FAERS Safety Report 5200287-1 (Version None)
Quarter: 2007Q1

REPORT INFORMATION
  Report Type: 
  Country: None (occurrence: None)
  Receive Date: 20070105
  Receipt Date: 20061228
  Transmission Date: 20070707
  Serious: Yes (Other)
  Sender: FDA-Public Use
  Company Number: US-PFIZER INC-2006121984

PATIENT
  Sex: Male

DRUGS (2)
  1. CEREBYX [Suspect]
  2. DILANTIN [Suspect]

REACTIONS (1)
  - ANTICONVULSANT DRUG LEVEL INCREASED [None]
